FAERS Safety Report 4823824-5 (Version None)
Quarter: 2005Q4

REPORT INFORMATION
  Report Type: 
  Country: None (occurrence: None)
  Receive Date: 20051109
  Receipt Date: 20050419
  Transmission Date: 20060501
  Serious: Yes (Hospitalization)
  Sender: FDA-Public Use
  Company Number: PHEH2005US04521

PATIENT
  Sex: Female

DRUGS (7)
  1. LOTENSIN HCT [Suspect]
     Indication: HYPERTENSION
     Dosage: 20 MG BENAZ/12.5 MG HCT QD
     Dates: start: 20050415
  2. MIACALCIN [Concomitant]
  3. VITAMINS NOS [Concomitant]
  4. POTASSIUM [Concomitant]
  5. ASPIRIN [Concomitant]
  6. TYLENOL W/ CODEINE NO. 3 [Suspect]
  7. OXYBUTYNIN [Suspect]
     Indication: HYPERTONIC BLADDER

REACTIONS (8)
  - CONFUSIONAL STATE [None]
  - DEHYDRATION [None]
  - DIARRHOEA [None]
  - DIZZINESS [None]
  - DRUG INTERACTION [None]
  - FALL [None]
  - FATIGUE [None]
  - LETHARGY [None]
